FAERS Safety Report 6257323-3 (Version None)
Quarter: 2009Q3

REPORT INFORMATION
  Report Type: 
  Country: None (occurrence: None)
  Receive Date: 20090701
  Receipt Date: 20090701
  Transmission Date: 20100115
  Serious: Yes (Hospitalization)
  Sender: FDA-Public Use
  Company Number: None

PATIENT
  Age: 30 Year
  Sex: Female
  Weight: 58.9676 kg

DRUGS (1)
  1. LEVAQUIN [Suspect]
     Indication: EAR INFECTION
     Dosage: 500MG TWICE DAILY/10 DAY PO
     Route: 048
     Dates: start: 19990713, end: 19990722

REACTIONS (7)
  - ABASIA [None]
  - BEDRIDDEN [None]
  - FEELING COLD [None]
  - MUSCLE TWITCHING [None]
  - NEURALGIA [None]
  - NEUROPATHY PERIPHERAL [None]
  - NO THERAPEUTIC RESPONSE [None]
